FAERS Safety Report 5571655-3 (Version None)
Quarter: 2007Q4

REPORT INFORMATION
  Report Type: 
  Country: None (occurrence: None)
  Receive Date: 20071221
  Receipt Date: 20071116
  Transmission Date: 20080405
  Serious: No
  Sender: FDA-Public Use
  Company Number: US-BAYER-200715052NA

PATIENT
  Age: 56 Year
  Sex: Female
  Weight: 91 kg

DRUGS (3)
  1. ANGELIQ [Suspect]
     Indication: HORMONE REPLACEMENT THERAPY
  2. PRINZIDE [Concomitant]
     Indication: HYPERTENSION
     Route: 048
  3. ESTRADIOL [Concomitant]
     Indication: DRUG USE FOR UNKNOWN INDICATION
     Route: 048
     Dates: start: 19950101, end: 20040101

REACTIONS (2)
  - ABDOMINAL PAIN [None]
  - NAUSEA [None]
